FAERS Safety Report 13819643 (Version 1)
Quarter: 2017Q3

REPORT INFORMATION
  Report Type: Spontaneous
  Country: GB (occurrence: GB)
  Receive Date: 20170801
  Receipt Date: 20170801
  Transmission Date: 20171127
  Serious: Yes (Other)
  Sender: FDA-Public Use
  Company Number: GB-CIPLA LTD.-2017GB13328

PATIENT

DRUGS (6)
  1. AMITRIPTYLINE HYDROCHLORIDE. [Concomitant]
     Active Substance: AMITRIPTYLINE HYDROCHLORIDE
     Dosage: AT NIGHT.
     Route: 065
     Dates: start: 20160523
  2. DESOGESTREL [Concomitant]
     Active Substance: DESOGESTREL
     Dosage: 1 DF, QD
     Route: 065
     Dates: start: 20160510
  3. DICLOFENAC SODIUM. [Concomitant]
     Active Substance: DICLOFENAC SODIUM
     Dosage: 1 GTT, UNK
     Route: 065
     Dates: start: 20170412, end: 20170426
  4. VENTOLIN [Concomitant]
     Active Substance: ALBUTEROL SULFATE
     Dosage: 2 DF, UNK
     Route: 055
     Dates: start: 20160516
  5. MONTELUKAST [Suspect]
     Active Substance: MONTELUKAST SODIUM
     Dosage: UNK
     Route: 065
     Dates: start: 20170710
  6. DEXAMETHASONE SODIUM PHOSPHATE. [Concomitant]
     Active Substance: DEXAMETHASONE SODIUM PHOSPHATE
     Dosage: FOR 24 HOURS.
     Route: 065
     Dates: start: 20170412, end: 20170426

REACTIONS (3)
  - Influenza like illness [Recovered/Resolved]
  - Depression [Recovered/Resolved]
  - Personality change [Unknown]

NARRATIVE: CASE EVENT DATE: 20170710
